FAERS Safety Report 18480474 (Version 1)
Quarter: 2020Q4

REPORT INFORMATION
  Report Type: Spontaneous
  Country: US (occurrence: US)
  Receive Date: 20201109
  Receipt Date: 20201109
  Transmission Date: 20210114
  Serious: Yes (Life-Threatening, Hospitalization)
  Sender: FDA-Public Use
  Company Number: None

PATIENT
  Age: 53 Year
  Sex: Female
  Weight: 45.36 kg

DRUGS (1)
  1. SEVELAMER HYDROCHLORIDE 800MG [Suspect]
     Active Substance: SEVELAMER HYDROCHLORIDE
     Indication: BLOOD PHOSPHORUS INCREASED
     Dosage: ?          QUANTITY:1 DF DOSAGE FORM;?
     Route: 048
     Dates: start: 20200801, end: 20200803

REACTIONS (9)
  - Ketoacidosis [None]
  - Hair disorder [None]
  - Decreased appetite [None]
  - Swelling face [None]
  - Malaise [None]
  - Feeling abnormal [None]
  - Drug hypersensitivity [None]
  - Rash [None]
  - Swelling [None]

NARRATIVE: CASE EVENT DATE: 20200806
